FAERS Safety Report 4667805-3 (Version None)
Quarter: 2005Q2

REPORT INFORMATION
  Report Type: 
  Country: None (occurrence: None)
  Receive Date: 20050520
  Receipt Date: 20010320
  Transmission Date: 20051028
  Serious: Yes (Hospitalization, Other)
  Sender: FDA-Public Use
  Company Number: US-MERCK-01032556

PATIENT
  Age: 67 Year
  Sex: Male
  Weight: 77 kg

DRUGS (3)
  1. COZAAR [Suspect]
     Route: 048
     Dates: start: 20000901
  2. BAYCOL [Suspect]
     Route: 048
     Dates: start: 20000519
  3. PRILOSEC [Concomitant]
     Route: 065

REACTIONS (1)
  - RHABDOMYOLYSIS [None]
